FAERS Safety Report 13003703 (Version 1)
Quarter: 2016Q4

REPORT INFORMATION
  Report Type: Spontaneous
  Country: US (occurrence: US)
  Receive Date: 20161206
  Receipt Date: 20161206
  Transmission Date: 20170207
  Serious: Yes (Hospitalization, Other)
  Sender: FDA-Public Use
  Company Number: US-TEVA-716907USA

PATIENT
  Age: 20 Year
  Sex: Female

DRUGS (3)
  1. BUPRENORPHINE AND NALOXONE [Suspect]
     Active Substance: BUPRENORPHINE\NALOXONE
     Dosage: 8 MG/DAY
     Route: 065
  2. PROMETHAZINE [Concomitant]
     Active Substance: PROMETHAZINE\PROMETHAZINE HYDROCHLORIDE
     Indication: WITHDRAWAL SYNDROME
     Route: 065
  3. CLONIDINE. [Suspect]
     Active Substance: CLONIDINE
     Indication: WITHDRAWAL SYNDROME
     Route: 065

REACTIONS (14)
  - Bradycardia [Recovered/Resolved]
  - Drug dependence, antepartum [Recovering/Resolving]
  - Asthenia [Recovered/Resolved]
  - Hyperhidrosis [Recovered/Resolved]
  - Live birth [Unknown]
  - Drug abuse [Recovered/Resolved]
  - Syncope [Recovered/Resolved]
  - Blindness [Recovered/Resolved]
  - Pallor [Recovered/Resolved]
  - Maternal exposure during pregnancy [Recovered/Resolved]
  - Overdose [Recovered/Resolved]
  - Intentional product misuse [Recovered/Resolved]
  - Drug withdrawal syndrome [Recovered/Resolved]
  - Hypotension [Recovered/Resolved]
